FAERS Safety Report 9952588 (Version 1)
Quarter: 2014Q1

REPORT INFORMATION
  Report Type: Report from Study
  Country: US (occurrence: US)
  Receive Date: 20140304
  Receipt Date: 20140304
  Transmission Date: 20141002
  Serious: No
  Sender: FDA-Public Use
  Company Number: US-ABBVIE-13P-163-1075081-00

PATIENT
  Age: 43 Year
  Sex: Female

DRUGS (8)
  1. HUMIRA [Suspect]
     Indication: RHEUMATOID ARTHRITIS
     Dates: start: 2012
  2. OXYCODONE [Concomitant]
     Indication: RHEUMATOID ARTHRITIS
     Dosage: 1 EVERY 2-4 HOURS
  3. SOLIS [Concomitant]
     Indication: RHEUMATOID ARTHRITIS
  4. ADDERALL [Concomitant]
     Indication: ASTHENIA
  5. SOMA [Concomitant]
     Indication: PAIN
  6. SOMA [Concomitant]
     Indication: RHEUMATOID ARTHRITIS
     Dosage: 1/2 TABLET AT NIGHT
  7. TEMAZEPAM [Concomitant]
     Indication: INSOMNIA
     Dosage: AT NIGHT
  8. TOPAMAX [Concomitant]
     Indication: MIGRAINE

REACTIONS (7)
  - Device malfunction [Unknown]
  - Injection site pain [Not Recovered/Not Resolved]
  - Oedema peripheral [Not Recovered/Not Resolved]
  - Injection site extravasation [Not Recovered/Not Resolved]
  - Incorrect dose administered [Unknown]
  - Chest pain [Unknown]
  - Tachycardia [Unknown]
